FAERS Safety Report 21719872 (Version 1)
Quarter: 2022Q4

REPORT INFORMATION
  Report Type: Spontaneous
  Country: US (occurrence: US)
  Receive Date: 20221213
  Receipt Date: 20221213
  Transmission Date: 20230113
  Serious: Yes (Hospitalization, Other)
  Sender: FDA-Public Use
  Company Number: US-WOCKHARDT BIO AG-2022WBA000214

PATIENT
  Age: 53 Year
  Sex: Male

DRUGS (1)
  1. LISINOPRIL [Suspect]
     Active Substance: LISINOPRIL
     Indication: Hypertension
     Dosage: UNKNOWN
     Route: 048

REACTIONS (2)
  - Small intestinal obstruction [Recovered/Resolved]
  - Intestinal angioedema [Recovered/Resolved]
